FAERS Safety Report 13478371 (Version 1)
Quarter: 2017Q2

REPORT INFORMATION
  Report Type: Report from Study
  Country: None (occurrence: BE)
  Receive Date: 20170425
  Receipt Date: 20170425
  Transmission Date: 20170830
  Serious: Yes (Death)
  Sender: FDA-Public Use
  Company Number: BE-ABBVIE-17P-013-1952340-00

PATIENT
  Sex: Male

DRUGS (3)
  1. DUODOPA [Suspect]
     Active Substance: CARBIDOPA\LEVODOPA
     Indication: PARKINSON^S DISEASE
     Dosage: AM= 6 ML; CD= 2.5 ML/H DURING 16 HRS; ED= 1 ML
     Route: 050
     Dates: start: 20140509, end: 20140605
  2. DUODOPA [Suspect]
     Active Substance: CARBIDOPA\LEVODOPA
     Dosage: AM= 1 ML; CD= 2.6 ML/H DURING 16 HRS; ND= 2.6 ML/H DURING 8 HRS; ED= 2.6 ML
     Route: 050
     Dates: start: 20140807
  3. DUODOPA [Suspect]
     Active Substance: CARBIDOPA\LEVODOPA
     Dosage: DOSES CONTINUOUSLY MONITORED AND ADAPTED
     Route: 050
     Dates: start: 20140605, end: 20140807

REACTIONS (2)
  - Renal failure [Fatal]
  - General physical health deterioration [Fatal]
